FAERS Safety Report 25288384 (Version 1)
Quarter: 2025Q2

REPORT INFORMATION
  Report Type: Spontaneous
  Country: US (occurrence: US)
  Receive Date: 20250509
  Receipt Date: 20250509
  Transmission Date: 20250716
  Serious: Yes (Death)
  Sender: GRIFOLS
  Company Number: US-IGSA-BIG0035017

PATIENT
  Sex: Female
  Weight: 39.002 kg

DRUGS (21)
  1. PROLASTIN-C LIQUID [Suspect]
     Active Substance: .ALPHA.1-PROTEINASE INHIBITOR HUMAN
     Indication: Alpha-1 antitrypsin deficiency
     Dosage: 3081 MILLIGRAM, Q.WK.
     Route: 042
  2. BROVANA [Concomitant]
     Active Substance: ARFORMOTEROL TARTRATE
  3. YUPELRI [Concomitant]
     Active Substance: REVEFENACIN
  4. ALBUTEROL SULFATE [Concomitant]
     Active Substance: ALBUTEROL SULFATE
  5. BENADRYL ALLERGY [Concomitant]
     Active Substance: DIPHENHYDRAMINE HYDROCHLORIDE
     Route: 048
  6. CRANBERRY CONCENTRATE [VACCINIUM MACROCARPON] [Concomitant]
  7. OXYGEN [Concomitant]
     Active Substance: OXYGEN
  8. SPIRONOLACTONE [Concomitant]
     Active Substance: SPIRONOLACTONE
     Route: 048
  9. VOLTAREN ARTHRITIS PAIN [Concomitant]
     Active Substance: DICLOFENAC SODIUM
  10. PROBIOTICS NOS [Concomitant]
     Active Substance: PROBIOTICS NOS
     Route: 048
  11. MIRTAZAPINE [Concomitant]
     Active Substance: MIRTAZAPINE
     Route: 048
  12. HYDROXYZINE HYDROCHLORIDE [Concomitant]
     Active Substance: HYDROXYZINE HYDROCHLORIDE
     Route: 048
  13. BENZONATATE [Concomitant]
     Active Substance: BENZONATATE
     Route: 048
  14. OMEPRAZOLE [Concomitant]
     Active Substance: OMEPRAZOLE
     Route: 048
  15. LEVOTHYROXINE SODIUM [Concomitant]
     Active Substance: LEVOTHYROXINE SODIUM
     Route: 048
  16. FUROSEMIDE [Concomitant]
     Active Substance: FUROSEMIDE
     Route: 048
  17. HYDROCORTISONE/PRAMOXINE [HYDROCORTISONE;PRAMOCAINE] [Concomitant]
  18. EPINEPHRINE [Concomitant]
     Active Substance: EPINEPHRINE
  19. LIDOCAINE [Concomitant]
     Active Substance: LIDOCAINE
  20. SODIUM CHLORIDE [Concomitant]
     Active Substance: SODIUM CHLORIDE
  21. DICYCLOMINE HYDROCHLORIDE [Concomitant]
     Active Substance: DICYCLOMINE HYDROCHLORIDE
     Route: 048

REACTIONS (1)
  - Death [Fatal]

NARRATIVE: CASE EVENT DATE: 20250101
